FAERS Safety Report 15225032 (Version 2)
Quarter: 2018Q3

REPORT INFORMATION
  Report Type: Report from Study
  Country: None (occurrence: CH)
  Receive Date: 20180801
  Receipt Date: 20180831
  Transmission Date: 20181010
  Serious: Yes (Other)
  Sender: FDA-Public Use
  Company Number: CH-ABBVIE-18K-151-2363700-00

PATIENT
  Sex: Male

DRUGS (12)
  1. DUODOPA [Suspect]
     Active Substance: CARBIDOPA\LEVODOPA
     Dosage: MORNING DOSE 6ML?CONTINUOUS RATE 6.4ML/H?EXTRA DOSE 2ML
     Route: 050
     Dates: start: 20180620
  2. DUODOPA [Suspect]
     Active Substance: CARBIDOPA\LEVODOPA
     Dosage: MORNING DOSE 6ML?CONTINUOUS RATE 4.6ML/H?EXTRA DOSE 2ML
     Route: 050
  3. DUODOPA [Suspect]
     Active Substance: CARBIDOPA\LEVODOPA
     Dosage: MORNING DOSE; 6ML?CONTINUOUS RATE: 3.5ML/H?EXTRA DOSE 2ML
     Route: 050
     Dates: start: 20180723
  4. DUODOPA [Suspect]
     Active Substance: CARBIDOPA\LEVODOPA
     Dosage: MORNING DOSE; 4.5ML?CONTINUOUS RATE: 3.5ML/H?EXTRA DOSE 2ML
     Route: 050
     Dates: start: 20180724
  5. DUODOPA [Suspect]
     Active Substance: CARBIDOPA\LEVODOPA
     Indication: PARKINSON^S DISEASE
     Dosage: 16H THERAPY
     Route: 050
     Dates: start: 20180313, end: 20180321
  6. MADOPAR [Concomitant]
     Active Substance: BENSERAZIDE HYDROCHLORIDE\LEVODOPA
     Indication: PRODUCT USED FOR UNKNOWN INDICATION
  7. DUODOPA [Suspect]
     Active Substance: CARBIDOPA\LEVODOPA
     Dosage: MORNING DOSE 6ML, CONTINUOUS RATE 6.2ML/H, EXTRA DOSE 2ML?16H THERAPY
     Route: 050
     Dates: start: 20180511
  8. LEPONEX [Concomitant]
     Active Substance: CLOZAPINE
     Dosage: 0.5 TABLET IN THE MORNING, 1.0 TABLET IN THE EVENING
     Route: 048
     Dates: start: 20180604
  9. DUODOPA [Suspect]
     Active Substance: CARBIDOPA\LEVODOPA
     Dosage: MORNING DOSE 6ML, CONTINUOUS RATE 5.5ML/H, EXTRA DOSE 2ML?16H THERAPY
     Route: 050
     Dates: start: 20180321, end: 20180511
  10. DUODOPA [Suspect]
     Active Substance: CARBIDOPA\LEVODOPA
     Dosage: MORNING DOSE 6ML?CONTINUOUS RATE 6.2ML/H?EXTRA DOSE 2ML
     Route: 050
     Dates: end: 20180620
  11. DUODOPA [Suspect]
     Active Substance: CARBIDOPA\LEVODOPA
     Dosage: MORNING DOSE 6ML?CONTINUOUS RATE 3.5ML/H?EXTRA DOSE 2ML
     Route: 050
  12. LEPONEX [Concomitant]
     Active Substance: CLOZAPINE
     Indication: PRODUCT USED FOR UNKNOWN INDICATION
     Dosage: 0.5 TABLET IN THE MORNING, 1.5 TABLET IN THE EVENING
     Route: 048
     Dates: end: 20180604

REACTIONS (11)
  - Lethargy [Not Recovered/Not Resolved]
  - Slow speech [Recovering/Resolving]
  - Hypophagia [Unknown]
  - Hypokinesia [Not Recovered/Not Resolved]
  - Fatigue [Unknown]
  - Hallucination [Recovered/Resolved]
  - Diplegia [Recovered/Resolved]
  - Mobility decreased [Not Recovered/Not Resolved]
  - Drug ineffective [Unknown]
  - Dyskinesia [Not Recovered/Not Resolved]
  - Bradykinesia [Not Recovered/Not Resolved]

NARRATIVE: CASE EVENT DATE: 2018
